FAERS Safety Report 5092986-X (Version None)
Quarter: 2006Q3

REPORT INFORMATION
  Report Type: 
  Country: None (occurrence: None)
  Receive Date: 20060830
  Receipt Date: 20060726
  Transmission Date: 20061208
  Serious: Yes (Disabling)
  Sender: FDA-Public Use
  Company Number: ZA-GLAXOSMITHKLINE-B0432604A

PATIENT
  Age: 77 Year
  Sex: Female
  Weight: 65 kg

DRUGS (2)
  1. ZELITREX [Suspect]
     Dosage: 500MG PER DAY
     Route: 065
     Dates: start: 20060707, end: 20060713
  2. CONCURRENT MEDICATIONS [Concomitant]

REACTIONS (8)
  - ASTHENIA [None]
  - FAECAL INCONTINENCE [None]
  - GAIT DISTURBANCE [None]
  - HYPOAESTHESIA [None]
  - MUSCULAR WEAKNESS [None]
  - PAIN IN EXTREMITY [None]
  - PARALYSIS [None]
  - URINARY INCONTINENCE [None]
